FAERS Safety Report 20001842 (Version 1)
Quarter: 2021Q4

REPORT INFORMATION
  Report Type: Spontaneous
  Country: DE (occurrence: DE)
  Receive Date: 20211027
  Receipt Date: 20211027
  Transmission Date: 20220303
  Serious: Yes (Hospitalization)
  Sender: FDA-Public Use
  Company Number: DE-CELGENE-DEU-2014110644

PATIENT
  Sex: Male
  Weight: 57.5 kg

DRUGS (7)
  1. AZACITIDINE [Suspect]
     Active Substance: AZACITIDINE
     Indication: Myelodysplastic syndrome
     Dosage: 15 MILLIGRAM/SQ. METER
     Route: 065
     Dates: start: 201010, end: 201101
  2. AZACITIDINE [Suspect]
     Active Substance: AZACITIDINE
     Dosage: 15 MILLIGRAM/SQ. METER
     Route: 065
     Dates: start: 200511, end: 200605
  3. AZACITIDINE [Suspect]
     Active Substance: AZACITIDINE
     Route: 065
     Dates: start: 201301
  4. AZACITIDINE [Suspect]
     Active Substance: AZACITIDINE
     Route: 065
     Dates: start: 20131209
  5. AZACITIDINE [Suspect]
     Active Substance: AZACITIDINE
     Dosage: 15 MILLIGRAM/SQ. METER
     Route: 065
     Dates: start: 200707, end: 200802
  6. REVLIMID [Suspect]
     Active Substance: LENALIDOMIDE
     Indication: Myelodysplastic syndrome
     Route: 048
     Dates: start: 20131216
  7. FUNGIZONE [Concomitant]
     Active Substance: AMPHOTERICIN B
     Indication: Product used for unknown indication
     Route: 065

REACTIONS (6)
  - Epstein-Barr virus test positive [Unknown]
  - Acute myeloid leukaemia [Unknown]
  - Parainfluenzae virus infection [Unknown]
  - General physical health deterioration [Unknown]
  - Pneumonia [Unknown]
  - Soft tissue infection [Unknown]

NARRATIVE: CASE EVENT DATE: 20130101
